FAERS Safety Report 26132335 (Version 1)
Quarter: 2025Q4

REPORT INFORMATION
  Report Type: Spontaneous
  Country: US (occurrence: US)
  Receive Date: 20251208
  Receipt Date: 20251208
  Transmission Date: 20260118
  Serious: No
  Sender: GUERBET
  Company Number: US-GUERBET / LLC-US-20250157

PATIENT
  Sex: Male

DRUGS (3)
  1. LIPIODOL [Suspect]
     Active Substance: ETHIODIZED OIL
     Indication: Lymphangiogram
     Route: 027
  2. LIPIODOL [Suspect]
     Active Substance: ETHIODIZED OIL
     Indication: Therapeutic embolisation
     Dosage: LIPIODOL MIXED WITH NBCA (BUTYL 2-CYANOACRYLATE) AT A 1:3 RATIO
     Route: 027
  3. ENBUCRILATE [Suspect]
     Active Substance: ENBUCRILATE
     Indication: Therapeutic embolisation
     Dosage: LIPIODOL MIXED WITH NBCA (BUTYL 2-CYANOACRYLATE) AT A 1:3 RATIO
     Route: 027

REACTIONS (2)
  - Groin pain [Recovered/Resolved]
  - Product use in unapproved indication [Recovered/Resolved]
